FAERS Safety Report 12720063 (Version 2)
Quarter: 2016Q4

REPORT INFORMATION
  Report Type: Spontaneous
  Country: CA (occurrence: CA)
  Receive Date: 20160907
  Receipt Date: 20161027
  Transmission Date: 20170207
  Serious: Yes (Life-Threatening, Hospitalization, Other)
  Sender: FDA-Public Use
  Company Number: CA-TEVA-690278ACC

PATIENT
  Age: 60 Year
  Sex: Male
  Weight: 69 kg

DRUGS (17)
  1. CISPLATIN (HOSPIRA) [Suspect]
     Active Substance: CISPLATIN
     Indication: SQUAMOUS CELL CARCINOMA OF LUNG
     Dosage: STRENGTH: 2MG/ML; 87MG DAY 1
     Route: 042
     Dates: start: 20160530, end: 20160603
  2. ZOFRAN [Concomitant]
     Active Substance: ONDANSETRON HYDROCHLORIDE
     Dosage: 8MG ORALLY, PRE-CHEMO AND AT BEDTIME ON DAY 1
     Route: 048
  3. MAXERAN [Concomitant]
     Active Substance: METOCLOPRAMIDE HYDROCHLORIDE
     Dosage: 10MG EVERY 4 HOURS WHEN NECESSARY
     Route: 048
  4. ELAVIL [Concomitant]
     Active Substance: AMITRIPTYLINE HYDROCHLORIDE
  5. LIPITOR [Concomitant]
     Active Substance: ATORVASTATIN CALCIUM
  6. DEXAMETHASONE. [Concomitant]
     Active Substance: DEXAMETHASONE
     Dosage: 8 MILLIGRAM DAILY; 4MG TWICE A DAY ON DAYS 2 TO 5
     Route: 048
  7. TYLENOL WITH CODEINE [Concomitant]
     Active Substance: ACETAMINOPHEN\CODEINE PHOSPHATE
  8. CIPRALEX [Concomitant]
     Active Substance: ESCITALOPRAM OXALATE
  9. ARTHROTEC [Concomitant]
     Active Substance: DICLOFENAC SODIUM\MISOPROSTOL
  10. ASPIRIN. [Concomitant]
     Active Substance: ASPIRIN
  11. EMEND [Concomitant]
     Active Substance: APREPITANT
     Dosage: 125 MILLIGRAM DAILY; 125MG ORALLY PRE-CHEMO
     Route: 048
  12. ETOPOSIDE INJECTION [Suspect]
     Active Substance: ETOPOSIDE
     Indication: SQUAMOUS CELL CARCINOMA OF LUNG
     Dosage: STRENGTH: 20 MG/ML; 90MG DAY 1 TO DAY 5
     Route: 042
     Dates: start: 20160530, end: 20160603
  13. DEXAMETHASONE. [Concomitant]
     Active Substance: DEXAMETHASONE
     Dosage: 12 MILLIGRAM DAILY; 12MG ORALLY PRE-CHEMO
     Route: 048
  14. LORAZAPAM [Concomitant]
     Active Substance: LORAZEPAM
  15. MORPHINE [Concomitant]
     Active Substance: MORPHINE
  16. ATIVAN [Concomitant]
     Active Substance: LORAZEPAM
  17. EMEND [Concomitant]
     Active Substance: APREPITANT
     Dosage: 80 MILLIGRAM DAILY; 80MG ORALLY DAILY ON DAYS 2 AND 3
     Route: 048

REACTIONS (12)
  - Hypoaesthesia [Recovering/Resolving]
  - Muscular weakness [Recovering/Resolving]
  - Red blood cell count decreased [None]
  - Haemoglobin decreased [None]
  - Activated partial thromboplastin time ratio increased [None]
  - Fatigue [Recovering/Resolving]
  - Cerebrovascular accident [Recovering/Resolving]
  - Ischaemic cerebral infarction [None]
  - International normalised ratio increased [None]
  - Hemiplegia [Recovering/Resolving]
  - Platelet count decreased [None]
  - International normalised ratio decreased [None]

NARRATIVE: CASE EVENT DATE: 20160604
